FAERS Safety Report 8579504-6 (Version None)
Quarter: 2012Q3

REPORT INFORMATION
  Report Type: 
  Country: None (occurrence: None)
  Receive Date: 20120808
  Receipt Date: 20120731
  Transmission Date: 20120928
  Serious: Yes (Hospitalization)
  Sender: FDA-Public Use
  Company Number: FR-GLAXOSMITHKLINE-B0819275A

PATIENT
  Sex: Female

DRUGS (12)
  1. VALACYCLOVIR HYDROCHLORIDE [Suspect]
     Indication: PROPHYLAXIS
     Dosage: 500MG PER DAY
     Route: 048
     Dates: start: 20120530, end: 20120704
  2. BACTRIM [Suspect]
     Indication: PROPHYLAXIS
     Dosage: 800MG ALTERNATE DAYS
     Route: 048
     Dates: start: 20120530, end: 20120704
  3. MIRTAZAPINE [Concomitant]
  4. NEORECORMON [Concomitant]
  5. LASIX [Concomitant]
  6. MOTILIUM [Concomitant]
  7. LANTUS [Concomitant]
  8. ACETAMINOPHEN [Concomitant]
  9. POTASSIUM CHLORIDE [Concomitant]
  10. ZOLPIDEM TARTRATE [Concomitant]
  11. REVLIMID [Suspect]
     Indication: MULTIPLE MYELOMA
     Dosage: 15MG ALTERNATE DAYS
     Route: 048
     Dates: start: 20120514, end: 20120704
  12. LEXOMIL [Concomitant]

REACTIONS (4)
  - PRURITUS [None]
  - ERYTHEMA [None]
  - TOXIC SKIN ERUPTION [None]
  - EOSINOPHILIA [None]
